FAERS Safety Report 8387795-X (Version None)
Quarter: 2012Q2

REPORT INFORMATION
  Report Type: 
  Country: None (occurrence: None)
  Receive Date: 20120525
  Receipt Date: 20120523
  Transmission Date: 20120825
  Serious: Yes (Hospitalization)
  Sender: FDA-Public Use
  Company Number: IT-GLAXOSMITHKLINE-B0803777A

PATIENT

DRUGS (2)
  1. LETROZOLE [Concomitant]
     Dosage: 2.5MG PER DAY
  2. LAPATINIB [Suspect]
     Indication: BREAST CANCER
     Dosage: 1250MG PER DAY
     Route: 048
     Dates: start: 20120406, end: 20120419

REACTIONS (5)
  - DEHYDRATION [None]
  - DIARRHOEA [None]
  - BLOOD ELECTROLYTES ABNORMAL [None]
  - ENTERITIS [None]
  - RENAL FAILURE ACUTE [None]
